FAERS Safety Report 5636842-4 (Version None)
Quarter: 2008Q1

REPORT INFORMATION
  Report Type: 
  Country: None (occurrence: None)
  Receive Date: 20080225
  Receipt Date: 20080213
  Transmission Date: 20080703
  Serious: Yes (Other)
  Sender: FDA-Public Use
  Company Number: US-BRISTOL-MYERS SQUIBB COMPANY-14074652

PATIENT
  Age: 67 Year
  Sex: Male

DRUGS (5)
  1. BLINDED: APIXABAN [Suspect]
     Indication: THROMBOSIS PROPHYLAXIS
     Dosage: INTERRUPTED ON 12FEB08
     Route: 048
     Dates: start: 20070510
  2. WARFARIN SODIUM [Suspect]
     Indication: THROMBOSIS PROPHYLAXIS
     Route: 048
     Dates: start: 20070510
  3. PLACEBO [Suspect]
     Indication: THROMBOSIS PROPHYLAXIS
     Route: 048
     Dates: start: 20070510
  4. AVAPRO [Concomitant]
     Dates: start: 20071026
  5. GLUCOPHAGE [Concomitant]
     Dates: start: 20070905

REACTIONS (1)
  - PANCYTOPENIA [None]
